FAERS Safety Report 13142317 (Version 4)
Quarter: 2017Q1

REPORT INFORMATION
  Report Type: Spontaneous
  Country: US (occurrence: US)
  Receive Date: 20170123
  Receipt Date: 20170131
  Transmission Date: 20170428
  Serious: Yes (Death, Hospitalization)
  Sender: FDA-Public Use
  Company Number: US-ACTELION-A-NJ2016-144582

PATIENT
  Age: 16 Month
  Sex: Male

DRUGS (16)
  1. CHLOROTHIAZIDE. [Concomitant]
     Active Substance: CHLOROTHIAZIDE
     Dosage: 2.2 ML, BID
     Route: 048
  2. IRON [Concomitant]
     Active Substance: IRON
  3. TRACLEER [Suspect]
     Active Substance: BOSENTAN
     Indication: PULMONARY ARTERIAL HYPERTENSION
     Dosage: 16.5 MG, BID
     Route: 049
     Dates: start: 20160324
  4. LACTOBACILLUS [Concomitant]
     Active Substance: LACTOBACILLUS ACIDOPHILUS
  5. TRACLEER [Suspect]
     Active Substance: BOSENTAN
     Dosage: 22 MG, BID
     Route: 049
  6. BUDESONIDE W/FORMOTEROL [Concomitant]
     Active Substance: BUDESONIDE\FORMOTEROL
  7. RANITIDINE. [Concomitant]
     Active Substance: RANITIDINE
  8. IPRATROPIUM [Concomitant]
     Active Substance: IPRATROPIUM
  9. MELATONIN [Concomitant]
     Active Substance: MELATONIN
  10. ADCIRCA [Concomitant]
     Active Substance: TADALAFIL
  11. ENOXAPARIN [Concomitant]
     Active Substance: ENOXAPARIN
  12. FUROSEMIDE. [Concomitant]
     Active Substance: FUROSEMIDE
     Dosage: 1.1 ML, Q8HRS
     Route: 048
  13. TRACLEER [Suspect]
     Active Substance: BOSENTAN
     Dosage: 62.5 MG, BID
     Route: 049
     Dates: start: 20161221
  14. HYDROCORTISONE. [Concomitant]
     Active Substance: HYDROCORTISONE
     Dosage: 5 MG, PRN
     Route: 048
  15. LEVALBUTEROL. [Concomitant]
     Active Substance: LEVALBUTEROL
  16. POLYETHYLENE GLYCOL [Concomitant]
     Active Substance: POLYETHYLENE GLYCOLS

REACTIONS (8)
  - Alanine aminotransferase increased [Recovered/Resolved]
  - Malaise [Unknown]
  - Aspartate aminotransferase increased [Recovered/Resolved]
  - Respiratory failure [Fatal]
  - Pseudomonas infection [Fatal]
  - Liver function test increased [Recovered/Resolved]
  - Burkholderia infection [Fatal]
  - Pulmonary hypertension [Fatal]

NARRATIVE: CASE EVENT DATE: 20160625
